FAERS Safety Report 14239788 (Version 1)
Quarter: 2017Q4

REPORT INFORMATION
  Report Type: Report from Study
  Country: US (occurrence: US)
  Receive Date: 20171130
  Receipt Date: 20171130
  Transmission Date: 20180321
  Serious: Yes (Other)
  Sender: FDA-Public Use
  Company Number: US-SAOL THERAPEUTICS-2017SAO01806

PATIENT
  Age: 35 Year
  Sex: Male

DRUGS (2)
  1. LIORESAL [Suspect]
     Active Substance: BACLOFEN
     Dosage: 400 ?G, \DAY
     Route: 037
     Dates: start: 20170406
  2. LIORESAL [Suspect]
     Active Substance: BACLOFEN
     Indication: MUSCLE SPASTICITY
     Dosage: 370.3 ?G, \DAY
     Route: 037
     Dates: start: 20170105, end: 20170406

REACTIONS (2)
  - Therapeutic response decreased [Not Recovered/Not Resolved]
  - Vitreous loss [Unknown]

NARRATIVE: CASE EVENT DATE: 20170406
